FAERS Safety Report 14612047 (Version 1)
Quarter: 2018Q1

REPORT INFORMATION
  Report Type: Spontaneous
  Country: US (occurrence: US)
  Receive Date: 20180308
  Receipt Date: 20180308
  Transmission Date: 20180509
  Serious: Yes (Hospitalization, Other)
  Sender: FDA-Public Use
  Company Number: US-TESARO, INC-US-2018TSO01011

PATIENT

DRUGS (2)
  1. ZEJULA [Suspect]
     Active Substance: NIRAPARIB
     Indication: PRODUCT USED FOR UNKNOWN INDICATION
     Dosage: UNK
  2. TAXOL [Suspect]
     Active Substance: PACLITAXEL
     Indication: PRODUCT USED FOR UNKNOWN INDICATION
     Dosage: UNK

REACTIONS (9)
  - Loss of personal independence in daily activities [Unknown]
  - Malaise [Unknown]
  - Off label use [Unknown]
  - Anaemia [Unknown]
  - Vascular access complication [Unknown]
  - Obsessive thoughts [Unknown]
  - Dehydration [Unknown]
  - Viral infection [Unknown]
  - Abnormal dreams [Unknown]
